FAERS Safety Report 11395342 (Version 2)
Quarter: 2015Q4

REPORT INFORMATION
  Report Type: Report from Study
  Country: CA (occurrence: CA)
  Receive Date: 20150819
  Receipt Date: 20151020
  Transmission Date: 20160304
  Serious: Yes (Hospitalization, Other)
  Sender: FDA-Public Use
  Company Number: CA-ABBVIE-15K-028-1445233-00

PATIENT
  Age: 25 Year
  Sex: Male
  Weight: 49.03 kg

DRUGS (1)
  1. HUMIRA [Suspect]
     Active Substance: ADALIMUMAB
     Indication: CROHN^S DISEASE
     Route: 058
     Dates: start: 20150508, end: 20150724

REACTIONS (6)
  - Fistula of small intestine [Unknown]
  - Small intestinal obstruction [Not Recovered/Not Resolved]
  - Protein total decreased [Unknown]
  - Cachexia [Unknown]
  - Crohn^s disease [Unknown]
  - Drug ineffective [Unknown]

NARRATIVE: CASE EVENT DATE: 2015
